FAERS Safety Report 5101252-5 (Version None)
Quarter: 2006Q3

REPORT INFORMATION
  Report Type: 
  Country: None (occurrence: None)
  Receive Date: 20060911
  Receipt Date: 20060904
  Transmission Date: 20061208
  Serious: Yes (Death)
  Sender: FDA-Public Use
  Company Number: AU-ROCHE-461915

PATIENT
  Sex: Female

DRUGS (2)
  1. RIVOTRIL [Suspect]
     Dosage: INDICATION REPORTED AS CHRONIC PAIN, TREMORES AND RESTLESS LEG SYNDROME.
     Route: 065
     Dates: start: 20030615
  2. RIVOTRIL [Suspect]
     Dosage: GRADUALLY REDUCING
     Route: 065

REACTIONS (18)
  - ABDOMINAL PAIN [None]
  - AMNESIA [None]
  - ANOREXIA [None]
  - ANXIETY [None]
  - COMPLETED SUICIDE [None]
  - DEPRESSED MOOD [None]
  - DISTURBANCE IN ATTENTION [None]
  - DIZZINESS [None]
  - EYE PAIN [None]
  - FATIGUE [None]
  - HEADACHE [None]
  - INAPPROPRIATE AFFECT [None]
  - MUSCLE SPASMS [None]
  - MYALGIA [None]
  - NAUSEA [None]
  - PAIN IN JAW [None]
  - TREMOR [None]
  - VOMITING [None]
